FAERS Safety Report 10744407 (Version 1)
Quarter: 2015Q1

REPORT INFORMATION
  Report Type: Spontaneous
  Country: US (occurrence: None)
  Receive Date: 20150126
  Receipt Date: 20150126
  Transmission Date: 20150721
  Serious: No
  Sender: FDA-Public Use
  Company Number: None

PATIENT
  Age: 52 Year
  Sex: Female
  Weight: 81.65 kg

DRUGS (1)
  1. FETZIMA [Suspect]
     Active Substance: LEVOMILNACIPRAN HYDROCHLORIDE
     Indication: DEPRESSION
     Dosage: 1 CAP, ONCE DAILLY
     Route: 048
     Dates: start: 20150106, end: 20150119

REACTIONS (2)
  - Glossodynia [None]
  - Gingival pain [None]

NARRATIVE: CASE EVENT DATE: 20150112
